FAERS Safety Report 12579203 (Version 1)
Quarter: 2016Q3

REPORT INFORMATION
  Report Type: Spontaneous
  Country: CA (occurrence: CA)
  Receive Date: 20160721
  Receipt Date: 20160721
  Transmission Date: 20161109
  Serious: Yes (Other)
  Sender: FDA-Public Use
  Company Number: CA-ROCHE-1793183

PATIENT
  Age: 36 Year
  Sex: Female

DRUGS (2)
  1. ACTILYSE [Suspect]
     Active Substance: ALTEPLASE
     Indication: PULMONARY EMBOLISM
     Dosage: 50 MG AT 30 MINUTES AFTER CARDIAC ARREST AND A FURTHER 50 MG 15 MINUTES LATER
     Route: 042
  2. HEPARIN [Suspect]
     Active Substance: HEPARIN SODIUM
     Indication: THROMBOSIS PROPHYLAXIS
     Route: 058

REACTIONS (7)
  - Intra-abdominal haemorrhage [Recovered/Resolved]
  - Hepatic enzyme increased [Unknown]
  - Procedural haemorrhage [Recovered/Resolved]
  - Lower gastrointestinal haemorrhage [Recovered/Resolved]
  - Vaginal haemorrhage [Recovered/Resolved]
  - Muscle haemorrhage [Unknown]
  - Pulmonary artery thrombosis [Recovered/Resolved]
